FAERS Safety Report 7381713-9 (Version None)
Quarter: 2011Q1

REPORT INFORMATION
  Report Type: 
  Country: None (occurrence: None)
  Receive Date: 20110329
  Receipt Date: 20101001
  Transmission Date: 20110831
  Serious: Yes (Hospitalization, Other)
  Sender: FDA-Public Use
  Company Number: US-BAYER-201023645NA

PATIENT
  Sex: Female
  Weight: 82.812 kg

DRUGS (3)
  1. PRAVASTATIN [Concomitant]
     Indication: BLOOD CHOLESTEROL INCREASED
     Dosage: 20 MG, UNK
     Dates: start: 20050101
  2. FLUOXETINE HCL [Concomitant]
     Indication: PREMENSTRUAL SYNDROME
     Dosage: 20 MG, UNK
     Dates: start: 20050101
  3. YAZ [Suspect]
     Dosage: UNK UNK, UNK
     Route: 048
     Dates: start: 20070101, end: 20070419

REACTIONS (3)
  - CHEST PAIN [None]
  - DYSPNOEA [None]
  - PULMONARY EMBOLISM [None]
